FAERS Safety Report 9737113 (Version 2)
Quarter: 2014Q1

REPORT INFORMATION
  Report Type: Spontaneous
  Country: US (occurrence: US)
  Receive Date: 20131206
  Receipt Date: 20140321
  Transmission Date: 20141002
  Serious: Yes (Death)
  Sender: FDA-Public Use
  Company Number: 2013SP003561

PATIENT
  Sex: Female
  Weight: 67 kg

DRUGS (7)
  1. LATUDA [Suspect]
     Indication: MOOD SWINGS
     Route: 048
     Dates: start: 2013
  2. LATUDA [Suspect]
     Indication: BIPOLAR II DISORDER
     Route: 048
     Dates: start: 2013
  3. LATUDA [Suspect]
     Indication: BIPOLAR I DISORDER
     Route: 048
     Dates: start: 2013
  4. SEROQUEL [Concomitant]
     Indication: AFFECTIVE DISORDER
     Dates: start: 2011
  5. VENLAFAXINE [Concomitant]
     Indication: AFFECTIVE DISORDER
     Dates: start: 2011
  6. METHYLPHENIDATE [Concomitant]
     Indication: AFFECTIVE DISORDER
     Dates: start: 2011
  7. INSULIN [Concomitant]
     Indication: DIABETES MELLITUS

REACTIONS (1)
  - Death [Fatal]
